FAERS Safety Report 5267601-2 (Version None)
Quarter: 2007Q1

REPORT INFORMATION
  Report Type: 
  Country: None (occurrence: None)
  Receive Date: 20070316
  Receipt Date: 20070306
  Transmission Date: 20070707
  Serious: Yes (Death, Other)
  Sender: FDA-Public Use
  Company Number: GR-AMGEN-UK209716

PATIENT
  Age: 68 Year
  Sex: Female

DRUGS (4)
  1. NEULASTA [Suspect]
     Indication: CHEMOTHERAPY
     Route: 058
     Dates: start: 20061222, end: 20061222
  2. CIPROFLOXACIN HYDROCHLORIDE [Concomitant]
     Route: 048
  3. FLUCONAZOLE [Concomitant]
     Route: 048
  4. VALTREX [Concomitant]
     Route: 048

REACTIONS (2)
  - MALIGNANT NEOPLASM PROGRESSION [None]
  - SPLENIC HAEMATOMA [None]
